FAERS Safety Report 14623057 (Version 1)
Quarter: 2018Q1

REPORT INFORMATION
  Report Type: Not Available
  Country: US (occurrence: US)
  Receive Date: 20180311
  Receipt Date: 20180311
  Transmission Date: 20180509
  Serious: No
  Sender: FDA-Public Use
  Company Number: US-NEUROCRINE BIOSCIENCES INC.-2018NBI00288

PATIENT
  Age: 62 Year
  Sex: Male

DRUGS (5)
  1. INVEGA [Concomitant]
     Active Substance: PALIPERIDONE
  2. PENICILLIN [Concomitant]
     Active Substance: PENICILLIN
  3. INGREZZA [Suspect]
     Active Substance: VALBENAZINE
     Route: 048
     Dates: start: 20180108
  4. MIDODRINE [Concomitant]
     Active Substance: MIDODRINE
  5. INGREZZA [Suspect]
     Active Substance: VALBENAZINE
     Indication: TARDIVE DYSKINESIA
     Route: 048
     Dates: end: 20180107

REACTIONS (1)
  - Drooling [Unknown]

NARRATIVE: CASE EVENT DATE: 20180115
